FAERS Safety Report 8010955-4 (Version None)
Quarter: 2011Q4

REPORT INFORMATION
  Report Type: 
  Country: None (occurrence: None)
  Receive Date: 20111228
  Receipt Date: 20111221
  Transmission Date: 20120403
  Serious: Yes (Death, Other)
  Sender: FDA-Public Use
  Company Number: FR-PFIZER INC-2011309516

PATIENT
  Age: 40 Year
  Sex: Female

DRUGS (5)
  1. CYTARABINE [Suspect]
     Indication: ACUTE MYELOID LEUKAEMIA RECURRENT
     Dosage: UNK
     Route: 042
     Dates: start: 20110405, end: 20110405
  2. IDARUBICIN HYDROCHLORIDE [Suspect]
     Dosage: UNK
     Route: 042
     Dates: start: 20110405, end: 20110405
  3. DEPOCYT [Suspect]
     Indication: ACUTE MYELOID LEUKAEMIA RECURRENT
     Dosage: 50 MG, UNK
     Route: 037
     Dates: start: 20110405, end: 20110405
  4. NEUPOGEN [Concomitant]
     Dosage: UNK
     Dates: start: 20110405
  5. FLUDARABINE PHOSPHATE [Suspect]
     Indication: ACUTE MYELOID LEUKAEMIA RECURRENT
     Dosage: UNK
     Route: 042
     Dates: start: 20110405, end: 20110405

REACTIONS (3)
  - PULMONARY EMBOLISM [None]
  - ENCEPHALOPATHY [None]
  - INFECTION [None]
